FAERS Safety Report 5020037-1 (Version None)
Quarter: 2006Q2

REPORT INFORMATION
  Report Type: 
  Country: None (occurrence: None)
  Receive Date: 20060607
  Receipt Date: 20060111
  Transmission Date: 20061013
  Serious: Yes (Disabling)
  Sender: FDA-Public Use
  Company Number: CA-GLAXOSMITHKLINE-A0589049A

PATIENT
  Sex: Female

DRUGS (7)
  1. AVANDIA [Suspect]
     Indication: EYE DISORDER
     Route: 065
     Dates: start: 20050511, end: 20051222
  2. GLYBURIDE [Concomitant]
     Dosage: 10MG TWICE PER DAY
     Dates: start: 19880901
  3. METFORMIN [Concomitant]
     Dosage: 1000MG TWICE PER DAY
  4. METOPROLOL [Concomitant]
     Indication: CORONARY ARTERY DISEASE
     Dosage: 50U PER DAY
  5. LIPITOR [Concomitant]
     Dosage: 20MG PER DAY
  6. HYDROCHLOROTHIAZIDE [Concomitant]
     Dosage: 25MG PER DAY
  7. VASOTEC [Concomitant]
     Dosage: 20MG TWICE PER DAY

REACTIONS (5)
  - CHOROIDAL NEOVASCULARISATION [None]
  - MACULAR DEGENERATION [None]
  - MACULAR OEDEMA [None]
  - SWELLING FACE [None]
  - VISUAL ACUITY REDUCED [None]
